FAERS Safety Report 10172252 (Version 1)
Quarter: 2014Q2

REPORT INFORMATION
  Report Type: Spontaneous
  Country: FR (occurrence: FR)
  Receive Date: 20140515
  Receipt Date: 20140515
  Transmission Date: 20141212
  Serious: Yes (Hospitalization)
  Sender: FDA-Public Use
  Company Number: FR-ASTRAZENECA-2014SE30652

PATIENT
  Age: 29866 Day
  Sex: Male

DRUGS (21)
  1. PERFALGAN [Suspect]
     Indication: ANALGESIC THERAPY
     Route: 042
     Dates: start: 20140324, end: 20140324
  2. CARBOCAINE [Suspect]
     Indication: ANAESTHESIA
     Route: 042
     Dates: start: 20140324, end: 20140324
  3. COVERSYL [Suspect]
     Indication: HYPERTENSION
     Route: 048
     Dates: end: 20140326
  4. SUFENTA [Suspect]
     Indication: ANAESTHESIA
     Route: 042
     Dates: start: 20140324, end: 20140324
  5. HYPNOVEL [Suspect]
     Indication: ANAESTHESIA
     Route: 042
     Dates: start: 20140324, end: 20140324
  6. KETAMINE PANPHARMA [Suspect]
     Indication: ANAESTHESIA
     Route: 042
     Dates: start: 20140324, end: 20140324
  7. PROFENID [Suspect]
     Indication: ANALGESIC THERAPY
     Route: 042
     Dates: start: 20140324, end: 20140324
  8. ACUPAN [Suspect]
     Indication: ANALGESIC THERAPY
     Route: 042
     Dates: start: 20140324, end: 20140324
  9. OCUFEN [Suspect]
     Indication: MYDRIASIS
     Route: 047
     Dates: start: 20140324, end: 20140324
  10. TROPICAMIDE [Suspect]
     Indication: MYDRIASIS
     Route: 047
     Dates: start: 20140324, end: 20140324
  11. NEOSYNEPHRINE [Suspect]
     Indication: MYDRIASIS
     Route: 047
     Dates: start: 20140324, end: 20140324
  12. CEFUROXIME [Suspect]
     Indication: ANTIBIOTIC PROPHYLAXIS
     Route: 047
     Dates: start: 20140324, end: 20140324
  13. PREVISCAN [Concomitant]
  14. DIGOXINE [Concomitant]
  15. FUROSEMIDE [Concomitant]
  16. TAHOR [Concomitant]
  17. XATRAL [Concomitant]
  18. SERETIDE [Concomitant]
  19. ISOPTINE [Concomitant]
  20. ZALDIAR [Concomitant]
  21. PARALYOC [Concomitant]

REACTIONS (2)
  - Anaphylactoid shock [Recovered/Resolved]
  - Angioedema [Recovered/Resolved]
